FAERS Safety Report 5155266-X (Version None)
Quarter: 2006Q4

REPORT INFORMATION
  Report Type: 
  Country: None (occurrence: None)
  Receive Date: 20061121
  Receipt Date: 20061106
  Transmission Date: 20070319
  Serious: Yes (Hospitalization)
  Sender: FDA-Public Use
  Company Number: JP-MERCK-0611USA02430

PATIENT
  Age: 85 Year
  Sex: Male

DRUGS (8)
  1. PEPCID [Suspect]
     Indication: PROPHYLAXIS AGAINST GASTROINTESTINAL ULCER
     Route: 048
     Dates: start: 20060510, end: 20060812
  2. LASIX [Concomitant]
     Route: 065
  3. PREDONINE [Concomitant]
     Route: 065
  4. FLUITRAN [Concomitant]
     Route: 065
  5. ALLOPURINOL [Concomitant]
     Route: 065
     Dates: start: 20060523, end: 20060701
  6. ASPIRIN [Concomitant]
     Route: 065
  7. MEVALOTIN [Concomitant]
     Route: 065
  8. MICARDIS [Concomitant]
     Route: 065

REACTIONS (3)
  - DRUG ERUPTION [None]
  - PYREXIA [None]
  - RASH PRURITIC [None]
